FAERS Safety Report 4664278-1 (Version None)
Quarter: 2005Q2

REPORT INFORMATION
  Report Type: 
  Country: None (occurrence: None)
  Receive Date: 20050516
  Receipt Date: 20050503
  Transmission Date: 20051028
  Serious: No
  Sender: FDA-Public Use
  Company Number: 11000

PATIENT
  Age: 62 Year
  Sex: Female

DRUGS (8)
  1. FENTANYL [Suspect]
  2. PROPOFOL [Suspect]
  3. SUXAMETHASONE [Suspect]
  4. ATRACURIUM [Suspect]
  5. CEFUROXIME [Suspect]
  6. DULOXETINE HYDROCHLORIDE [Suspect]
     Indication: URINARY INCONTINENCE
     Dosage: PO
     Route: 048
     Dates: start: 20041101
  7. ONDANSETRON [Suspect]
  8. DESFLURANE [Suspect]

REACTIONS (3)
  - ANAPHYLACTIC REACTION [None]
  - DRUG INTERACTION [None]
  - PROCEDURAL HYPOTENSION [None]
